FAERS Safety Report 10021166 (Version 2)
Quarter: 2014Q3

REPORT INFORMATION
  Report Type: Spontaneous
  Country: FR (occurrence: None)
  Receive Date: 20140313
  Receipt Date: 20140710
  Transmission Date: 20150326
  Serious: Yes (Hospitalization)
  Sender: FDA-Public Use
  Company Number: 2222470

PATIENT
  Age: 74 Year
  Sex: Male

DRUGS (4)
  1. OTHER THERAPEUTIC RADIOPHARMACEUTICALS [Concomitant]
  2. PACLITAXEL. [Suspect]
     Active Substance: PACLITAXEL
     Indication: SQUAMOUS CELL CARCINOMA OF LUNG
     Route: 042
     Dates: start: 20131015
  3. AUGMENTIN [Concomitant]
     Active Substance: AMOXICILLIN\CLAVULANATE POTASSIUM
  4. CARBOPLATIN. [Suspect]
     Active Substance: CARBOPLATIN
     Indication: SQUAMOUS CELL CARCINOMA OF LUNG
     Route: 042
     Dates: start: 20131015

REACTIONS (5)
  - Pericardial effusion [None]
  - Radiation pneumonitis [None]
  - Pneumocystis jirovecii pneumonia [None]
  - Respiratory failure [None]
  - Superinfection [None]

NARRATIVE: CASE EVENT DATE: 201401
